FAERS Safety Report 19601410 (Version 2)
Quarter: 2021Q3

REPORT INFORMATION
  Report Type: Spontaneous
  Country: DE (occurrence: DE)
  Receive Date: 20210723
  Receipt Date: 20210901
  Transmission Date: 20211014
  Serious: Yes (Death, Hospitalization, Other)
  Sender: FDA-Public Use
  Company Number: DE-BAUSCH-BL-2021-024717

PATIENT
  Age: 93 Year
  Sex: Female
  Weight: 42 kg

DRUGS (14)
  1. ATROPIN [Suspect]
     Active Substance: ATROPINE
     Indication: PRODUCT USED FOR UNKNOWN INDICATION
     Dosage: 1 AMPOULE
     Route: 065
     Dates: start: 20190802
  2. RINGERS SOLUTION [Concomitant]
     Active Substance: CALCIUM CHLORIDE\POTASSIUM CHLORIDE\SODIUM CHLORIDE
     Indication: PRODUCT USED FOR UNKNOWN INDICATION
     Dosage: 1500 ML DAILY; AS PERMANENT DRIP
     Route: 048
     Dates: start: 20190802
  3. MIDAZOLAM. [Suspect]
     Active Substance: MIDAZOLAM
     Indication: ANAESTHESIA
     Dosage: TOGETHER WITH NACL 0.9%
     Route: 065
     Dates: start: 20190802
  4. SUFENTA [Suspect]
     Active Substance: SUFENTANIL CITRATE
     Indication: PRODUCT USED FOR UNKNOWN INDICATION
     Dosage: TOGETHER WITH NACL 0.9%
     Route: 065
     Dates: start: 20190802
  5. KETAMIN [Suspect]
     Active Substance: KETAMINE
     Indication: ANAESTHESIA
     Route: 065
  6. PANTOZOL [Suspect]
     Active Substance: PANTOPRAZOLE SODIUM
     Indication: PRODUCT USED FOR UNKNOWN INDICATION
     Dosage: 80 MILLIGRAM DAILY;
     Route: 048
     Dates: start: 20190802
  7. ADRENALIN [Suspect]
     Active Substance: EPINEPHRINE
     Indication: PRODUCT USED FOR UNKNOWN INDICATION
     Dosage: 3 TIMES 10 MICROGRAM
     Route: 065
  8. UNACID 3 G [SULTAMICILLIN TOSILATE] [Suspect]
     Active Substance: SULTAMICILLIN TOSYLATE
     Indication: PRODUCT USED FOR UNKNOWN INDICATION
     Dosage: 6 GRAM DAILY;
     Route: 048
  9. ARTERENOL [Suspect]
     Active Substance: NOREPINEPHRINE HYDROCHLORIDE, (+/-)-
     Indication: PRODUCT USED FOR UNKNOWN INDICATION
     Dosage: TOGETHER WITH NACL 0.9%
     Route: 065
     Dates: start: 20190802
  10. SUPRARENIN [Suspect]
     Active Substance: EPINEPHRINE
     Indication: PRODUCT USED FOR UNKNOWN INDICATION
     Dosage: 4 AMPOULES
     Route: 065
     Dates: start: 20190802
  11. TRANEXAMIC ACID. [Suspect]
     Active Substance: TRANEXAMIC ACID
     Indication: PRODUCT USED FOR UNKNOWN INDICATION
     Dosage: 1000 MILLIGRAM DAILY;
     Route: 048
     Dates: start: 20190802, end: 20190802
  12. AMIODARONE [Suspect]
     Active Substance: AMIODARONE
     Indication: PRODUCT USED FOR UNKNOWN INDICATION
     Route: 065
     Dates: start: 20190802
  13. NACL [Concomitant]
     Active Substance: SODIUM CHLORIDE
     Indication: PRODUCT USED FOR UNKNOWN INDICATION
  14. SODIUM BICARBONATE. [Concomitant]
     Active Substance: SODIUM BICARBONATE
     Indication: PRODUCT USED FOR UNKNOWN INDICATION
     Dosage: 400 ML DAILY;

REACTIONS (18)
  - Coagulopathy [Unknown]
  - Acute respiratory failure [Unknown]
  - Cardiac arrest [Recovered/Resolved]
  - Dysphonia [Unknown]
  - Aspiration [Unknown]
  - Ventricular fibrillation [Unknown]
  - Acidosis [Unknown]
  - Cardiogenic shock [Unknown]
  - Haematemesis [Unknown]
  - Ischaemia [Unknown]
  - Abdominal distension [Unknown]
  - Haemorrhage [Unknown]
  - Myocardial infarction [Unknown]
  - Toxicity to various agents [Fatal]
  - Hepatic failure [Unknown]
  - Anaemia [Unknown]
  - Gastrointestinal haemorrhage [Unknown]
  - Bundle branch block right [Unknown]

NARRATIVE: CASE EVENT DATE: 201907
